APPROVED DRUG PRODUCT: GALANTAMINE HYDROBROMIDE
Active Ingredient: GALANTAMINE HYDROBROMIDE
Strength: EQ 8MG BASE
Dosage Form/Route: TABLET;ORAL
Application: A077590 | Product #002
Applicant: MYLAN PHARMACEUTICALS INC
Approved: May 29, 2009 | RLD: No | RS: No | Type: DISCN